FAERS Safety Report 16131878 (Version 1)
Quarter: 2019Q1

REPORT INFORMATION
  Report Type: Spontaneous
  Country: US (occurrence: US)
  Receive Date: 20190225
  Receipt Date: 20190225
  Transmission Date: 20190418
  Serious: Yes (Death)
  Sender: FDA-Public Use
  Company Number: None

PATIENT
  Age: 77 Year

DRUGS (1)
  1. MYCOPHENOLATE 500MG TAB (GENERIC CELL [Suspect]
     Active Substance: MYCOPHENOLIC ACID
     Route: 048
     Dates: start: 20160229, end: 20181226

REACTIONS (1)
  - Death [None]

NARRATIVE: CASE EVENT DATE: 20190220
